FAERS Safety Report 7936678-5 (Version None)
Quarter: 2011Q4

REPORT INFORMATION
  Report Type: 
  Country: None (occurrence: None)
  Receive Date: 20111123
  Receipt Date: 20111117
  Transmission Date: 20120403
  Serious: Yes (Death, Hospitalization, Other)
  Sender: FDA-Public Use
  Company Number: KR-BAYER-2011-036539

PATIENT
  Age: 44 Year
  Sex: Male
  Weight: 71 kg

DRUGS (54)
  1. MEK INHIBITOR (DIHYDROXYPROP-DIFLU-METHOXYPHEN-CYCLOPROPA-SULFAMI) [Suspect]
     Indication: HEPATIC NEOPLASM MALIGNANT
     Dosage: 50 MG, QD
     Route: 048
     Dates: start: 20110318, end: 20110318
  2. LIVACT [Concomitant]
     Indication: PROPHYLAXIS
     Dosage: 4.15 G, TID
     Route: 048
     Dates: start: 20101112
  3. PANTOPRAZOLE SODIUM [Concomitant]
     Dosage: 40 MG, QD
     Route: 048
     Dates: start: 20110715
  4. SODIUM POLYSTYRENE SULFONATE [Concomitant]
     Indication: PROPHYLAXIS
     Dosage: 40 ML, Q2HR
     Route: 048
     Dates: start: 20110811, end: 20110813
  5. BANAN [Concomitant]
     Indication: INFECTION PROPHYLAXIS
     Dosage: 100 MG, TID
     Route: 048
     Dates: start: 20110815
  6. MEK INHIBITOR (DIHYDROXYPROP-DIFLU-METHOXYPHEN-CYCLOPROPA-SULFAMI) [Suspect]
     Dosage: 50 MG, BID
     Route: 048
     Dates: start: 20110512, end: 20110714
  7. SORAFENIB (RAF KINASE INHIBITOR) [Suspect]
     Dosage: 400 MG, BID
     Route: 048
     Dates: start: 20110408, end: 20110428
  8. SORAFENIB (RAF KINASE INHIBITOR) [Suspect]
     Dosage: 400 MG, QD
     Route: 048
     Dates: start: 20110429, end: 20110429
  9. ULTRAVIST 150 [Concomitant]
     Dosage: 140 ML, ONCE
     Route: 042
     Dates: start: 20110718, end: 20110718
  10. LACTOBACILLUS ACIDOPHILUS [Concomitant]
     Indication: ANTIBIOTIC PROPHYLAXIS
     Dosage: 300 MG, TID
     Route: 048
     Dates: start: 20101123
  11. ALLEGRA [Concomitant]
     Indication: DIARRHOEA
     Dosage: 180 MG, QD
     Route: 048
     Dates: start: 20110325
  12. PANTOPRAZOLE SODIUM [Concomitant]
     Indication: GASTRIC ULCER
     Dosage: 20 MG, QD
     Route: 048
     Dates: start: 20110613, end: 20110714
  13. SORAFENIB (RAF KINASE INHIBITOR) [Suspect]
     Dosage: 400 MG, BID
     Route: 048
     Dates: start: 20110512, end: 20110714
  14. ULTRAVIST 150 [Concomitant]
     Dosage: 140 ML, ONCE
     Route: 042
     Dates: start: 20110603, end: 20110603
  15. SMECTA [SMECTITE] [Concomitant]
     Indication: DIARRHOEA
     Dosage: 20 ML, TID
     Route: 048
     Dates: start: 20110322, end: 20110323
  16. LACTICARE HC [Concomitant]
     Dosage: PRN
     Route: 061
     Dates: start: 20110722
  17. HYDROCORTISONE BUTYRATE PROPIONATE [Concomitant]
     Indication: PALMAR-PLANTAR ERYTHRODYSAESTHESIA SYNDROME
     Dosage: UNK UNK, PRN
     Route: 061
     Dates: start: 20110505, end: 20110522
  18. KLENZO SOLUTION [Concomitant]
     Indication: PROPHYLAXIS
     Dosage: UNK UNK, PRN
     Route: 048
     Dates: start: 20110725, end: 20110803
  19. SORAFENIB (RAF KINASE INHIBITOR) [Suspect]
     Dosage: 600MG (200/400MG QD)
     Route: 048
     Dates: start: 20110319, end: 20110407
  20. MEGESTROL ACETATE [Concomitant]
     Indication: PROPHYLAXIS
     Dosage: 20 ML, QD
     Route: 048
     Dates: start: 20110320, end: 20110414
  21. LOPERAMIDE HCL [Concomitant]
     Dosage: 2 MG, PRN
     Route: 048
     Dates: start: 20110422, end: 20110726
  22. MEK INHIBITOR (DIHYDROXYPROP-DIFLU-METHOXYPHEN-CYCLOPROPA-SULFAMI) [Suspect]
     Dosage: 50 MG, QD
     Route: 048
     Dates: start: 20110511, end: 20110511
  23. BARACLUDE [Concomitant]
     Indication: HEPATITIS B
     Dosage: 0.5 MG, QD
     Route: 048
     Dates: start: 20101110
  24. LACTICARE HC [Concomitant]
     Indication: PALMAR-PLANTAR ERYTHRODYSAESTHESIA SYNDROME
     Dosage: PRN
     Route: 061
     Dates: start: 20110325, end: 20110502
  25. BACTROBAN [Concomitant]
     Indication: EXCORIATION
     Dosage: UNK, PRN
     Route: 061
     Dates: start: 20110725
  26. MEK INHIBITOR (DIHYDROXYPROP-DIFLU-METHOXYPHEN-CYCLOPROPA-SULFAMI) [Suspect]
     Dosage: 50 MG, QD
     Route: 048
     Dates: start: 20110715, end: 20110715
  27. SORAFENIB (RAF KINASE INHIBITOR) [Suspect]
     Dosage: 400 MG, QD
     Route: 048
     Dates: start: 20110511, end: 20110511
  28. SORAFENIB (RAF KINASE INHIBITOR) [Suspect]
     Dosage: 400 MG, QD
     Route: 048
     Dates: start: 20110715, end: 20110715
  29. ULTRAVIST 150 [Concomitant]
     Dosage: 140 ML, ONCE
     Route: 042
     Dates: start: 20110715, end: 20110715
  30. ULTRAVIST 150 [Concomitant]
     Dosage: 140 ML, ONCE
     Route: 042
     Dates: start: 20110422, end: 20110422
  31. HEPADIAL [DIMECROTIC ACID] [Concomitant]
     Indication: GASTRIC ULCER
     Dosage: 50 MG, TID
     Route: 048
     Dates: start: 20101123, end: 20110324
  32. HEPATAMINE [Concomitant]
     Indication: MEDICAL DIET
     Dosage: 500 ML, QD
     Route: 042
     Dates: start: 20110311, end: 20110311
  33. MEGESTROL ACETATE [Concomitant]
     Dosage: 20 ML, QD
     Route: 048
     Dates: start: 20110508, end: 20110522
  34. NORVASC [Concomitant]
     Indication: HYPERTENSION
     Dosage: 5 MG, QD
     Route: 048
     Dates: start: 20110401, end: 20110714
  35. METOCLOPRAMIDE [Concomitant]
     Indication: NAUSEA
     Dosage: 10 MG, QD
     Route: 042
     Dates: start: 20110422, end: 20110422
  36. ISOLEUCINE [Concomitant]
     Indication: DECREASED APPETITE
     Dosage: 500 ML, QOD
     Route: 042
     Dates: start: 20110723, end: 20110802
  37. ISOLEUCINE [Concomitant]
     Dosage: 500 ML, QD
     Route: 042
     Dates: start: 20110812, end: 20110812
  38. SODIUM POLYSTYRENE SULFONATE [Concomitant]
     Dosage: 40 ML, Q2HR
     Route: 048
     Dates: start: 20110814, end: 20110814
  39. SODIUM POLYSTYRENE SULFONATE [Concomitant]
     Dosage: 40 ML, TID
     Route: 048
     Dates: start: 20110815
  40. MEK INHIBITOR (DIHYDROXYPROP-DIFLU-METHOXYPHEN-CYCLOPROPA-SULFAMI) [Suspect]
     Dosage: 50 MG, BID
     Route: 048
     Dates: start: 20110319, end: 20110328
  41. SORAFENIB (RAF KINASE INHIBITOR) [Suspect]
     Indication: HEPATIC NEOPLASM MALIGNANT
     Dosage: 400 MG, QD
     Route: 048
     Dates: start: 20110318, end: 20110318
  42. GASMOTIN [Concomitant]
     Indication: GASTRIC ULCER
     Dosage: 5 MG, QD
     Route: 048
     Dates: start: 20110317, end: 20110317
  43. TELMISARTAN [Concomitant]
     Indication: HYPERTENSION
     Dosage: 40 MG, QD
     Route: 048
     Dates: start: 20110408, end: 20110727
  44. DESOWEN [Concomitant]
     Indication: PALMAR-PLANTAR ERYTHRODYSAESTHESIA SYNDROME
     Dosage: UNK UNK, PRN
     Route: 061
     Dates: start: 20110503, end: 20110522
  45. KLENZO SOLUTION [Concomitant]
     Indication: DECREASED APPETITE
     Dosage: UNK UNK, PRN
     Route: 048
     Dates: start: 20110701, end: 20110714
  46. MEK INHIBITOR (DIHYDROXYPROP-DIFLU-METHOXYPHEN-CYCLOPROPA-SULFAMI) [Suspect]
     Dosage: 50 MG, QD
     Route: 048
     Dates: start: 20110429, end: 20110429
  47. ULTRAVIST 150 [Concomitant]
     Indication: COMPUTERISED TOMOGRAM
     Dosage: 140 ML, ONCE
     Route: 042
     Dates: start: 20100314, end: 20100314
  48. TEPRENONE [Concomitant]
     Indication: GASTRIC ULCER
     Dosage: 50 MG, TID
     Route: 048
     Dates: start: 20101123
  49. GASMOTIN [Concomitant]
     Dosage: 5 MG, QD
     Route: 048
     Dates: start: 20110318, end: 20110318
  50. LOPERAMIDE HCL [Concomitant]
     Indication: DIARRHOEA
     Dosage: 2 MG, TID
     Route: 048
     Dates: start: 20110322, end: 20110323
  51. XYZAL [Concomitant]
     Indication: PALMAR-PLANTAR ERYTHRODYSAESTHESIA SYNDROME
     Dosage: 5 MG, QD
     Route: 048
     Dates: start: 20110504, end: 20110522
  52. MUCOGEL [Concomitant]
     Indication: GASTRIC ULCER
     Dosage: 12 G, TID
     Route: 048
     Dates: start: 20110701, end: 20110714
  53. TANTUM [Concomitant]
     Indication: PROPHYLAXIS
     Dosage: UNK UNK, PRN
     Dates: start: 20110725, end: 20110803
  54. SODIUM CHLORIDE [Concomitant]
     Indication: PROPHYLAXIS
     Dosage: 1000 MG, QD
     Route: 042
     Dates: start: 20110812, end: 20110813

REACTIONS (3)
  - MYOPATHY [None]
  - HEPATIC FAILURE [None]
  - LEFT VENTRICULAR DYSFUNCTION [None]
